FAERS Safety Report 23366589 (Version 2)
Quarter: 2024Q1

REPORT INFORMATION
  Report Type: Report from Study
  Country: US (occurrence: US)
  Receive Date: 20240104
  Receipt Date: 20240125
  Transmission Date: 20240409
  Serious: Yes (Hospitalization)
  Sender: FDA-Public Use
  Company Number: US-PFIZER INC-PV202400000818

PATIENT
  Age: 59 Year
  Sex: Female
  Weight: 63.1 kg

DRUGS (22)
  1. CYTARABINE [Suspect]
     Active Substance: CYTARABINE
     Indication: Acute myeloid leukaemia
     Dosage: 3460 MG, 1 IN 1 D
     Route: 042
     Dates: start: 20231201, end: 20231205
  2. CYTARABINE [Suspect]
     Active Substance: CYTARABINE
     Indication: Myelodysplastic syndrome
  3. FLUDARABINE [Suspect]
     Active Substance: FLUDARABINE PHOSPHATE
     Indication: Myelodysplastic syndrome
     Dosage: 52 MG, 1 IN 1 D
     Route: 042
     Dates: start: 20231201, end: 20231205
  4. FLUDARABINE [Suspect]
     Active Substance: FLUDARABINE PHOSPHATE
     Indication: Acute myeloid leukaemia
  5. NKX-101 [Suspect]
     Active Substance: NKX-101
     Indication: Myelodysplastic syndrome
     Dosage: 1.5X10^9
     Route: 042
     Dates: start: 20231208, end: 20231208
  6. NKX-101 [Suspect]
     Active Substance: NKX-101
     Indication: Acute myeloid leukaemia
     Dosage: 1.5X10^9
     Route: 042
     Dates: start: 20231215, end: 20231215
  7. NKX-101 [Suspect]
     Active Substance: NKX-101
     Dosage: 1.5X10^9
     Route: 042
     Dates: start: 20231222, end: 20231222
  8. ERTAPENEM [Concomitant]
     Active Substance: ERTAPENEM
     Indication: Sepsis
     Dosage: UNK
     Route: 042
     Dates: start: 20231211, end: 20231213
  9. ACYCLOVIR [Concomitant]
     Active Substance: ACYCLOVIR
     Indication: Antiviral prophylaxis
     Dosage: UNK
     Route: 048
     Dates: start: 20211115
  10. EMPAGLIFLOZIN [Concomitant]
     Active Substance: EMPAGLIFLOZIN
     Indication: Cardiomyopathy
     Dosage: UNK
     Route: 048
     Dates: start: 20230523
  11. LASIX [Concomitant]
     Active Substance: FUROSEMIDE
     Indication: Cardiomyopathy
     Dosage: UNK
     Route: 048
     Dates: start: 20230422
  12. LIDOCAINE\PRILOCAINE [Concomitant]
     Active Substance: LIDOCAINE\PRILOCAINE
     Indication: Prophylaxis
     Dosage: UNK
     Route: 061
     Dates: start: 20230308
  13. LORAZEPAM [Concomitant]
     Active Substance: LORAZEPAM
     Indication: Prophylaxis
     Dosage: UNK
     Route: 048
     Dates: start: 20230720
  14. METOPROLOL [Concomitant]
     Active Substance: METOPROLOL
     Indication: Cardiomyopathy
     Dosage: UNK
     Route: 048
     Dates: start: 20230421
  15. ZOFRAN [Concomitant]
     Active Substance: ONDANSETRON HYDROCHLORIDE
     Indication: Prophylaxis
     Dosage: UNK
     Route: 048
     Dates: start: 20230301
  16. POSACONAZOLE [Concomitant]
     Active Substance: POSACONAZOLE
     Indication: Prophylaxis
     Dosage: UNK
     Route: 048
     Dates: start: 20231013
  17. POTASSIUM CHLORIDE [Concomitant]
     Active Substance: POTASSIUM CHLORIDE
     Indication: Prophylaxis
     Dosage: UNK
     Route: 048
     Dates: start: 20230421
  18. COMPAZINE [Concomitant]
     Active Substance: PROCHLORPERAZINE MALEATE
     Indication: Prophylaxis
     Dosage: UNK
     Route: 048
     Dates: start: 20220329
  19. SACUBITRIL\VALSARTAN [Concomitant]
     Active Substance: SACUBITRIL\VALSARTAN
     Indication: Cardiomyopathy
     Dosage: UNK
     Route: 048
     Dates: start: 20220608
  20. SPIRONOLACTONE [Concomitant]
     Active Substance: SPIRONOLACTONE
     Indication: Cardiomyopathy
     Dosage: UNK
     Route: 048
     Dates: start: 20230323, end: 20231221
  21. CEFDINIR [Concomitant]
     Active Substance: CEFDINIR
     Indication: Prophylaxis
     Dosage: UNK
     Route: 048
     Dates: start: 20231121
  22. ZOSYN [Concomitant]
     Active Substance: PIPERACILLIN SODIUM\TAZOBACTAM SODIUM
     Indication: Sepsis
     Dosage: UNK
     Route: 042
     Dates: start: 20231208

REACTIONS (1)
  - Sepsis [Recovered/Resolved]

NARRATIVE: CASE EVENT DATE: 20231226
